FAERS Safety Report 13526473 (Version 1)
Quarter: 2017Q2

REPORT INFORMATION
  Report Type: Spontaneous
  Country: US (occurrence: US)
  Receive Date: 20170509
  Receipt Date: 20170509
  Transmission Date: 20170830
  Serious: Yes (Hospitalization, Other)
  Sender: FDA-Public Use
  Company Number: US-ACCORD-051246

PATIENT
  Age: 14 Year
  Sex: Male

DRUGS (3)
  1. VINCRISTINE [Concomitant]
     Active Substance: VINCRISTINE
  2. MERCAPTOPURINE/MERCAPTOPURINE ANHYDROUS [Concomitant]
  3. METHOTREXATE. [Suspect]
     Active Substance: METHOTREXATE
     Indication: B-CELL PROLYMPHOCYTIC LEUKAEMIA
     Route: 037

REACTIONS (1)
  - Toxicity to various agents [Recovered/Resolved]
